FAERS Safety Report 6337958-X (Version None)
Quarter: 2009Q3

REPORT INFORMATION
  Report Type: 
  Country: None (occurrence: None)
  Receive Date: 20090902
  Receipt Date: 20081126
  Transmission Date: 20100115
  Serious: Yes (Other)
  Sender: FDA-Public Use
  Company Number: FR-AVENTIS-200815838GDDC

PATIENT
  Age: 48 Year
  Sex: Female
  Weight: 85 kg

DRUGS (15)
  1. AFLIBERCEPT [Suspect]
     Route: 042
     Dates: start: 20080525, end: 20080525
  2. DOCETAXEL [Suspect]
     Route: 042
     Dates: start: 20080525, end: 20080525
  3. CISPLATIN [Suspect]
     Route: 042
     Dates: start: 20080525, end: 20080525
  4. FLUOROURACIL [Suspect]
     Route: 042
     Dates: start: 20080525, end: 20080525
  5. DURAGESIC-100 [Concomitant]
     Indication: ABDOMINAL PAIN
     Route: 058
     Dates: start: 20080109
  6. DURAGESIC-100 [Concomitant]
     Route: 058
     Dates: start: 20080731
  7. DURAGESIC-100 [Concomitant]
     Indication: PAIN
     Route: 058
     Dates: start: 20080109
  8. DURAGESIC-100 [Concomitant]
     Route: 058
     Dates: start: 20080731
  9. UMULINE                            /00646003/ [Concomitant]
     Route: 058
     Dates: start: 20060701
  10. UMULINE                            /00646003/ [Concomitant]
     Route: 058
     Dates: start: 20080501
  11. NOVORAPID [Concomitant]
     Route: 058
     Dates: start: 20060701
  12. NOVORAPID [Concomitant]
     Route: 058
     Dates: start: 20080501
  13. SERESTA [Concomitant]
     Indication: DEPRESSION
     Route: 048
     Dates: start: 20080401
  14. DERMATOLOGICALS [Concomitant]
     Dates: start: 20080527
  15. KETOPROFEN [Concomitant]
     Route: 030
     Dates: start: 20080604

REACTIONS (9)
  - CHEST PAIN [None]
  - COCCYDYNIA [None]
  - CONTUSION [None]
  - FACE INJURY [None]
  - HAEMATOMA [None]
  - JOINT SPRAIN [None]
  - PERIORBITAL HAEMATOMA [None]
  - VAGINAL DISCHARGE [None]
  - VAGINAL FISTULA [None]
